FAERS Safety Report 6238581-8 (Version None)
Quarter: 2009Q2

REPORT INFORMATION
  Report Type: 
  Country: None (occurrence: None)
  Receive Date: 20090622
  Receipt Date: 20090615
  Transmission Date: 20091009
  Serious: Yes (Hospitalization)
  Sender: FDA-Public Use
  Company Number: US-ELI_LILLY_AND_COMPANY-US200906003548

PATIENT
  Sex: Female

DRUGS (10)
  1. HUMULIN N [Suspect]
     Dosage: 25 U, 2/D
     Dates: start: 19890101, end: 20090501
  2. XALATAN [Concomitant]
     Indication: GLAUCOMA
  3. LANOXIN [Concomitant]
  4. LASIX [Concomitant]
  5. COREG [Concomitant]
  6. LISINOPRIL [Concomitant]
  7. COUMADIN [Concomitant]
  8. NOVOLOG [Concomitant]
     Dosage: 10 U, 3/D
  9. LEVEMIR [Concomitant]
     Dosage: 45 U, DAILY (1/D)
  10. LEVEMIR [Concomitant]
     Dosage: 50 U, DAILY (1/D)

REACTIONS (4)
  - BLOOD GLUCOSE INCREASED [None]
  - CARDIAC DISORDER [None]
  - CORONARY ARTERY BYPASS [None]
  - GLYCOSYLATED HAEMOGLOBIN INCREASED [None]
